FAERS Safety Report 5627417-1 (Version None)
Quarter: 2008Q1

REPORT INFORMATION
  Report Type: 
  Country: None (occurrence: None)
  Receive Date: 20080214
  Receipt Date: 20080214
  Transmission Date: 20080703
  Serious: No
  Sender: FDA-Public Use
  Company Number: None

PATIENT
  Age: 63 Year
  Sex: Male
  Weight: 95.2554 kg

DRUGS (1)
  1. LIPITOR [Suspect]
     Indication: HYPERLIPIDAEMIA
     Dosage: 20MG  DAILY  PO   (DURATION: 7YEARS 10MONTHS)
     Route: 048
     Dates: start: 19980515, end: 20060315

REACTIONS (1)
  - COGNITIVE DISORDER [None]
